FAERS Safety Report 6719714-3 (Version None)
Quarter: 2010Q2

REPORT INFORMATION
  Report Type: 
  Country: None (occurrence: None)
  Receive Date: 20100511
  Receipt Date: 20100426
  Transmission Date: 20101027
  Serious: Yes (Hospitalization, Other)
  Sender: FDA-Public Use
  Company Number: PHEH2006US15238

PATIENT
  Sex: Male

DRUGS (34)
  1. AREDIA [Suspect]
     Dosage: 90 MG, QW4
     Route: 042
  2. ZOMETA [Suspect]
  3. REVLIMID [Concomitant]
  4. DEXAMETHASONE [Concomitant]
  5. VELCADE [Concomitant]
  6. CORGARD [Concomitant]
     Dosage: 20 MG, QD
  7. LASIX [Concomitant]
     Dosage: 20 MG, QD
  8. K-DUR [Concomitant]
     Dosage: 20 MEQ, QD
  9. ELAVIL [Concomitant]
     Dosage: 25 MG, QD
  10. PRILOSEC [Concomitant]
     Dosage: 20 MG, QD
  11. INTERFERON [Concomitant]
     Dosage: UNK
  12. DILANTIN                                /AUS/ [Concomitant]
     Route: 048
  13. ADVIL [Concomitant]
  14. NAPROSYN [Concomitant]
  15. PREDNISONE [Concomitant]
  16. MS CONTIN [Concomitant]
  17. PERCOCET [Concomitant]
  18. NEURONTIN [Concomitant]
  19. CELEXA [Concomitant]
  20. MAG-OX [Concomitant]
  21. FAMVIR [Concomitant]
  22. LEVAQUIN [Concomitant]
  23. BACTRIM DS [Concomitant]
  24. INSULIN [Concomitant]
  25. SINGULAIR [Concomitant]
  26. THALIDOMIDE [Concomitant]
  27. CITALOPRAM HYDROBROMIDE [Concomitant]
  28. MAGNESIUM OXIDE [Concomitant]
  29. OMEPRAZOLE [Concomitant]
  30. ALBUTEROL SULFATE AND IPRATROPIUM BROMIDE [Concomitant]
  31. COTRIM [Concomitant]
  32. LEVOFLOXACIN [Concomitant]
  33. SIMVASTATIN [Concomitant]
  34. RABEPRAZOLE SODIUM [Concomitant]

REACTIONS (62)
  - ANAEMIA [None]
  - ANXIETY [None]
  - APHTHOUS STOMATITIS [None]
  - ARTERIOSCLEROSIS [None]
  - ARTHRALGIA [None]
  - ASTHMA [None]
  - BLOOD GLUCOSE FLUCTUATION [None]
  - BONE DISORDER [None]
  - BONE OPERATION [None]
  - BONE SCAN ABNORMAL [None]
  - BRONCHITIS [None]
  - CATARACT [None]
  - CELLULITIS [None]
  - CEREBRAL ISCHAEMIA [None]
  - CHRONIC OBSTRUCTIVE PULMONARY DISEASE [None]
  - CONTUSION [None]
  - DEBRIDEMENT [None]
  - DECREASED INTEREST [None]
  - DENTAL CARIES [None]
  - DIABETES MELLITUS [None]
  - DIVERTICULUM INTESTINAL [None]
  - DYSPHEMIA [None]
  - FALL [None]
  - GASTROINTESTINAL HAEMORRHAGE [None]
  - GENERAL PHYSICAL HEALTH DETERIORATION [None]
  - GINGIVITIS [None]
  - HAEMATURIA [None]
  - HERPES SIMPLEX [None]
  - HYPERLIPIDAEMIA [None]
  - LIPOATROPHY [None]
  - LOCALISED INFECTION [None]
  - LUNG INFILTRATION [None]
  - MASS [None]
  - METASTASES TO BONE [None]
  - NAUSEA [None]
  - NEPHROLITHIASIS [None]
  - NEURODERMATITIS [None]
  - NEUROPATHY PERIPHERAL [None]
  - OEDEMA PERIPHERAL [None]
  - ONYCHOMYCOSIS [None]
  - OSTEOARTHRITIS [None]
  - OSTEONECROSIS OF JAW [None]
  - OSTEOPOROSIS [None]
  - OSTEOSCLEROSIS [None]
  - OTITIS MEDIA [None]
  - PAIN [None]
  - PAIN IN EXTREMITY [None]
  - PANCYTOPENIA [None]
  - PARAESTHESIA [None]
  - PERIODONTAL DISEASE [None]
  - PNEUMONIA [None]
  - PNEUMONIA VIRAL [None]
  - PROSTATE CANCER [None]
  - PROSTATOMEGALY [None]
  - RENAL CYST [None]
  - SPINAL COMPRESSION FRACTURE [None]
  - TENDONITIS [None]
  - TOOTH FRACTURE [None]
  - TOOTH LOSS [None]
  - TREMOR [None]
  - UPPER RESPIRATORY TRACT INFECTION [None]
  - VASCULAR INSUFFICIENCY [None]
